FAERS Safety Report 14649904 (Version 2)
Quarter: 2018Q1

REPORT INFORMATION
  Report Type: Spontaneous
  Country: NL (occurrence: NL)
  Receive Date: 20180316
  Receipt Date: 20180323
  Transmission Date: 20180509
  Serious: Yes (Hospitalization)
  Sender: FDA-Public Use
  Company Number: NL-SA-2018SA073224

PATIENT
  Age: 45 Year
  Sex: Female

DRUGS (15)
  1. FLUCLOXACILLIN [Concomitant]
     Active Substance: FLUCLOXACILLIN
     Route: 065
     Dates: end: 20180316
  2. RANITIDINE. [Concomitant]
     Active Substance: RANITIDINE
     Route: 065
  3. MOVICOLON [Concomitant]
     Active Substance: POLYETHYLENE GLYCOL 3350\POTASSIUM CHLORIDE\SODIUM BICARBONATE\SODIUM CHLORIDE
     Indication: CONSTIPATION
     Dosage: 2 SACHETS 1 X DD, IF NECESSARY
     Route: 065
  4. PRED-CLYSMA [Concomitant]
     Active Substance: PREDNISOLONE SODIUM PHOSPHATE
     Indication: CONSTIPATION
     Route: 065
  5. HYDROCORTISONE. [Concomitant]
     Active Substance: HYDROCORTISONE
     Route: 065
  6. OXYCODONE [Concomitant]
     Active Substance: OXYCODONE
     Route: 048
  7. ETHINYLESTRADIOL/LEVONORGESTREL [Concomitant]
     Dosage: 30 / 150UG;
     Route: 048
  8. FENTANYL. [Concomitant]
     Active Substance: FENTANYL
     Route: 065
  9. MAGNESIUM [Concomitant]
     Active Substance: MAGNESIUM
     Route: 065
  10. ROSUVASTATIN. [Concomitant]
     Active Substance: ROSUVASTATIN
     Route: 048
  11. MYOZYME [Suspect]
     Active Substance: ALGLUCOSIDASE ALFA
     Indication: GLYCOGEN STORAGE DISEASE TYPE II
     Route: 041
     Dates: start: 20021112
  12. CALCIUM CARBONATE/COLECALCIFEROL [Concomitant]
     Dosage: 2,5 GR/800IE 1X DD 2
     Route: 065
  13. CRESTOR [Concomitant]
     Active Substance: ROSUVASTATIN CALCIUM
     Route: 065
  14. HYDROCORTISONE/POLYMYXIN B SULFATE/OXYTETRACYCLINE CALCIUM [Concomitant]
     Route: 065
  15. SODIUM ACID PHOSPHATE [Concomitant]
     Route: 054

REACTIONS (9)
  - Wound infection [Recovering/Resolving]
  - Cystitis [Unknown]
  - Arrhythmia [Recovering/Resolving]
  - Depressed level of consciousness [Recovering/Resolving]
  - Urinary tract infection [Recovering/Resolving]
  - Restlessness [Recovering/Resolving]
  - Neurogenic bladder [Recovering/Resolving]
  - Muscular weakness [Recovering/Resolving]
  - Cardiac arrest [Unknown]

NARRATIVE: CASE EVENT DATE: 20180221
